FAERS Safety Report 25721844 (Version 1)
Quarter: 2025Q3

REPORT INFORMATION
  Report Type: Spontaneous
  Country: US (occurrence: None)
  Receive Date: 20250823
  Receipt Date: 20250823
  Transmission Date: 20251020
  Serious: Yes (Disabling)
  Sender: FDA-CTU
  Company Number: None

PATIENT
  Age: 59 Year
  Sex: Male
  Weight: 47.25 kg

DRUGS (15)
  1. BUPRENORPHINE [Suspect]
     Active Substance: BUPRENORPHINE
     Indication: Pain
     Route: 062
     Dates: start: 202207, end: 20221031
  2. PERCOCET [Suspect]
     Active Substance: ACETAMINOPHEN\OXYCODONE HYDROCHLORIDE
  3. PREGABALIN [Suspect]
     Active Substance: PREGABALIN
  4. ACETAMINOPHEN\OXYCODONE HYDROCHLORIDE [Concomitant]
     Active Substance: ACETAMINOPHEN\OXYCODONE HYDROCHLORIDE
  5. Baclofen 10 mg x 2 daily [Concomitant]
  6. nortriptyline 10 mg x 1 daily [Concomitant]
  7. MAGNESIUM [Concomitant]
     Active Substance: MAGNESIUM
  8. ivermectin/fenbendazole, [Concomitant]
  9. NAC [Concomitant]
  10. QUERCETIN [Concomitant]
     Active Substance: QUERCETIN
  11. Palmitoylethanolamide (PEA) [Concomitant]
  12. okra pods [Concomitant]
  13. ELM [Concomitant]
     Active Substance: ELM
  14. ALOE [Concomitant]
     Active Substance: ALOE
  15. Immunoglobulins [Concomitant]

REACTIONS (12)
  - Withdrawal syndrome [None]
  - Pain [None]
  - Application site pruritus [None]
  - Application site burn [None]
  - Treatment delayed [None]
  - Product availability issue [None]
  - Inadequate analgesia [None]
  - Loss of personal independence in daily activities [None]
  - Impaired work ability [None]
  - Bankruptcy [None]
  - Economic problem [None]
  - Procedural pain [None]

NARRATIVE: CASE EVENT DATE: 20220714
